FAERS Safety Report 13067950 (Version 1)
Quarter: 2016Q4

REPORT INFORMATION
  Report Type: Spontaneous
  Country: US (occurrence: US)
  Receive Date: 20161227
  Receipt Date: 20161227
  Transmission Date: 20170207
  Serious: No
  Sender: FDA-Public Use
  Company Number: None

PATIENT
  Age: 24 Year
  Sex: Female

DRUGS (1)
  1. HUMIRA [Suspect]
     Active Substance: ADALIMUMAB
     Indication: CROHN^S DISEASE
     Dosage: 40MG EVERY 14 DAYS SUBCUTANEOUSLY
     Route: 058

REACTIONS (4)
  - Chills [None]
  - Productive cough [None]
  - Paranasal sinus discomfort [None]
  - Pain [None]
